FAERS Safety Report 9597138 (Version 2)
Quarter: 2013Q4

REPORT INFORMATION
  Report Type: Spontaneous
  Country: JP (occurrence: JP)
  Receive Date: 20131004
  Receipt Date: 20131113
  Transmission Date: 20140711
  Serious: Yes (Hospitalization)
  Sender: FDA-Public Use
  Company Number: JP-ASTRAZENECA-2013SE73614

PATIENT
  Age: 84 Year
  Sex: Female

DRUGS (9)
  1. MEROPEN [Suspect]
     Indication: PNEUMONIA
     Route: 042
     Dates: start: 20130914, end: 20130924
  2. MEROPEN [Suspect]
     Indication: PNEUMONIA
     Route: 042
     Dates: start: 20130925, end: 20130927
  3. ELNEOPA [Suspect]
     Indication: MALNUTRITION
     Route: 065
     Dates: start: 20130920, end: 20130924
  4. ELNEOPA [Suspect]
     Indication: MALNUTRITION
     Route: 065
     Dates: start: 20130925, end: 20130927
  5. ELNEOPA [Suspect]
     Indication: MALNUTRITION
     Route: 065
     Dates: start: 20131004
  6. ELNEOPA [Suspect]
     Indication: MALNUTRITION
     Route: 065
     Dates: start: 20130925, end: 20130927
  7. ELNEOPA [Suspect]
     Indication: MALNUTRITION
     Route: 065
     Dates: start: 20130928, end: 20131004
  8. SOLDEM 3AG [Concomitant]
     Indication: MALNUTRITION
     Route: 065
     Dates: start: 20130828, end: 20130920
  9. ALBUMINAR [Concomitant]
     Route: 065
     Dates: start: 20130919, end: 20130920

REACTIONS (1)
  - Hepatic function abnormal [Recovering/Resolving]
